FAERS Safety Report 8212993-5 (Version None)
Quarter: 2012Q1

REPORT INFORMATION
  Report Type: 
  Country: None (occurrence: None)
  Receive Date: 20120315
  Receipt Date: 20120302
  Transmission Date: 20120608
  Serious: Yes (Death, Other)
  Sender: FDA-Public Use
  Company Number: FR-CELGENEUS-056-21880-11113485

PATIENT
  Sex: Female

DRUGS (2)
  1. REVLIMID [Suspect]
     Route: 048
  2. DEXAMETHASONE [Concomitant]
     Route: 065

REACTIONS (3)
  - LUNG DISORDER [None]
  - OVERDOSE [None]
  - NERVOUS SYSTEM DISORDER [None]
